FAERS Safety Report 5772121-2 (Version None)
Quarter: 2008Q2

REPORT INFORMATION
  Report Type: 
  Country: None (occurrence: None)
  Receive Date: 20080613
  Receipt Date: 20080610
  Transmission Date: 20081010
  Serious: Yes (Hospitalization, Other)
  Sender: FDA-Public Use
  Company Number: US-MERCK-0707USA02689

PATIENT
  Age: 71 Year
  Sex: Female
  Weight: 51 kg

DRUGS (4)
  1. FOSAMAX [Suspect]
     Indication: OSTEOPOROSIS
     Route: 048
     Dates: start: 20010101
  2. FOSAMAX [Suspect]
     Route: 048
     Dates: start: 20030508, end: 20060101
  3. THYROXIN [Concomitant]
     Indication: HYPOTHYROIDISM
     Route: 065
     Dates: start: 19980101
  4. INDERAL [Concomitant]
     Indication: HEADACHE
     Route: 065
     Dates: start: 19870101

REACTIONS (18)
  - APHTHOUS STOMATITIS [None]
  - ARTHROPATHY [None]
  - CONDUCTIVE DEAFNESS [None]
  - EAR DISORDER [None]
  - EAR INFECTION [None]
  - EAR PAIN [None]
  - EUSTACHIAN TUBE DYSFUNCTION [None]
  - GRAFT DYSFUNCTION [None]
  - INFECTION [None]
  - INTESTINAL OBSTRUCTION [None]
  - MYOFASCIAL PAIN SYNDROME [None]
  - ORAL TORUS [None]
  - OSTEOMYELITIS [None]
  - OSTEOMYELITIS ACUTE [None]
  - OSTEONECROSIS [None]
  - OTITIS MEDIA ACUTE [None]
  - OTITIS MEDIA CHRONIC [None]
  - TEMPOROMANDIBULAR JOINT SYNDROME [None]
